FAERS Safety Report 15877219 (Version 2)
Quarter: 2020Q1

REPORT INFORMATION
  Report Type: Report from Study
  Country: US (occurrence: US)
  Receive Date: 20190128
  Receipt Date: 20200121
  Transmission Date: 20200409
  Serious: Yes (Hospitalization, Other)
  Sender: FDA-Public Use
  Company Number: US-SA-2019SA017565

PATIENT
  Age: 58 Year
  Sex: Female

DRUGS (1)
  1. TERIFLUNOMIDE. [Suspect]
     Active Substance: TERIFLUNOMIDE
     Indication: MULTIPLE SCLEROSIS
     Dosage: 14 MG, QD
     Route: 048
     Dates: start: 201812

REACTIONS (6)
  - Diarrhoea [Not Recovered/Not Resolved]
  - Seizure [Unknown]
  - Bladder disorder [Not Recovered/Not Resolved]
  - Cough [Unknown]
  - Viral infection [Unknown]
  - Paraesthesia [Unknown]

NARRATIVE: CASE EVENT DATE: 201812
